FAERS Safety Report 24779006 (Version 2)
Quarter: 2025Q1

REPORT INFORMATION
  Report Type: Spontaneous
  Country: JP (occurrence: JP)
  Receive Date: 20241226
  Receipt Date: 20250110
  Transmission Date: 20250409
  Serious: Yes (Other)
  Sender: ALEXION PHARMACEUTICALS
  Company Number: JP-ASTRAZENECA-240144605_063010_P_1

PATIENT
  Age: 72 Year

DRUGS (24)
  1. DAPAGLIFLOZIN [Suspect]
     Active Substance: DAPAGLIFLOZIN
     Indication: Type 2 diabetes mellitus
     Dosage: 5 MILLIGRAM, QD
  2. DAPAGLIFLOZIN [Suspect]
     Active Substance: DAPAGLIFLOZIN
     Dosage: 5 MILLIGRAM, QD
     Route: 048
  3. DAPAGLIFLOZIN [Suspect]
     Active Substance: DAPAGLIFLOZIN
     Dosage: 5 MILLIGRAM, QD
  4. DAPAGLIFLOZIN [Suspect]
     Active Substance: DAPAGLIFLOZIN
     Dosage: 5 MILLIGRAM, QD
     Route: 048
  5. DAPAGLIFLOZIN [Suspect]
     Active Substance: DAPAGLIFLOZIN
     Dosage: 5 MILLIGRAM, QD
  6. DAPAGLIFLOZIN [Suspect]
     Active Substance: DAPAGLIFLOZIN
     Dosage: 5 MILLIGRAM, QD
     Route: 048
  7. DAPAGLIFLOZIN [Suspect]
     Active Substance: DAPAGLIFLOZIN
     Dosage: 5 MILLIGRAM, QD
  8. DAPAGLIFLOZIN [Suspect]
     Active Substance: DAPAGLIFLOZIN
     Dosage: 5 MILLIGRAM, QD
     Route: 048
  9. XULTOPHY 100/3.6 [Concomitant]
     Active Substance: INSULIN DEGLUDEC\LIRAGLUTIDE
     Route: 065
  10. XULTOPHY 100/3.6 [Concomitant]
     Active Substance: INSULIN DEGLUDEC\LIRAGLUTIDE
     Route: 065
  11. XULTOPHY 100/3.6 [Concomitant]
     Active Substance: INSULIN DEGLUDEC\LIRAGLUTIDE
     Route: 065
  12. XULTOPHY 100/3.6 [Concomitant]
     Active Substance: INSULIN DEGLUDEC\LIRAGLUTIDE
     Route: 065
  13. XULTOPHY 100/3.6 [Concomitant]
     Active Substance: INSULIN DEGLUDEC\LIRAGLUTIDE
     Route: 065
  14. XULTOPHY 100/3.6 [Concomitant]
     Active Substance: INSULIN DEGLUDEC\LIRAGLUTIDE
     Route: 065
  15. XULTOPHY 100/3.6 [Concomitant]
     Active Substance: INSULIN DEGLUDEC\LIRAGLUTIDE
     Route: 065
  16. XULTOPHY 100/3.6 [Concomitant]
     Active Substance: INSULIN DEGLUDEC\LIRAGLUTIDE
     Route: 065
  17. IMEGLIMIN HYDROCHLORIDE [Concomitant]
     Active Substance: IMEGLIMIN HYDROCHLORIDE
     Route: 065
  18. IMEGLIMIN HYDROCHLORIDE [Concomitant]
     Active Substance: IMEGLIMIN HYDROCHLORIDE
     Route: 065
  19. IMEGLIMIN HYDROCHLORIDE [Concomitant]
     Active Substance: IMEGLIMIN HYDROCHLORIDE
     Route: 065
  20. IMEGLIMIN HYDROCHLORIDE [Concomitant]
     Active Substance: IMEGLIMIN HYDROCHLORIDE
     Route: 065
  21. IMEGLIMIN HYDROCHLORIDE [Concomitant]
     Active Substance: IMEGLIMIN HYDROCHLORIDE
     Route: 065
  22. IMEGLIMIN HYDROCHLORIDE [Concomitant]
     Active Substance: IMEGLIMIN HYDROCHLORIDE
     Route: 065
  23. IMEGLIMIN HYDROCHLORIDE [Concomitant]
     Active Substance: IMEGLIMIN HYDROCHLORIDE
     Route: 065
  24. IMEGLIMIN HYDROCHLORIDE [Concomitant]
     Active Substance: IMEGLIMIN HYDROCHLORIDE
     Route: 065

REACTIONS (1)
  - Hyperkalaemia [Unknown]
